FAERS Safety Report 7508859-6 (Version None)
Quarter: 2011Q2

REPORT INFORMATION
  Report Type: 
  Country: None (occurrence: None)
  Receive Date: 20110527
  Receipt Date: 20110513
  Transmission Date: 20111010
  Serious: Yes (Other)
  Sender: FDA-Public Use
  Company Number: PHHY2011IT42298

PATIENT
  Age: 77 Year
  Sex: Male

DRUGS (10)
  1. STALEVO 100 [Suspect]
     Indication: PARKINSON'S DISEASE
     Dosage: 2 DF OF 100 MG/25 MG/200 MG ORAL + 2 DF OF 125 MG/31.25 MG/200 MG (ENTACAPONE+LEVODOPA+CARBIDOPA)
  2. ZOLOFT [Concomitant]
     Dosage: 100 MG, UNK
     Route: 048
  3. SINEMET [Concomitant]
     Dosage: 200 MG+50 MG
     Route: 048
  4. TENORMIN [Concomitant]
     Dosage: 100 MG, UNK
     Route: 048
  5. ACETAMINOPHEN [Suspect]
     Indication: PYREXIA
  6. STALEVO 100 [Suspect]
     Dosage: CONTINUED AT HALVED DOSE
     Dates: start: 20110401
  7. MIRTAZAPINE [Concomitant]
     Dosage: 30 MG, UNK
     Route: 048
  8. REQUIP [Concomitant]
     Dosage: 4 MG, UNK
     Route: 048
  9. TICLID [Concomitant]
     Dosage: 1 DF, UNK
     Route: 048
  10. VENITRIN [Concomitant]
     Dosage: 10 MG/24 HOURS
     Route: 062

REACTIONS (2)
  - JAUNDICE CHOLESTATIC [None]
  - BLOOD BILIRUBIN UNCONJUGATED INCREASED [None]
